FAERS Safety Report 6454364-8 (Version None)
Quarter: 2009Q4

REPORT INFORMATION
  Report Type: 
  Country: None (occurrence: None)
  Receive Date: 20091124
  Receipt Date: 20091116
  Transmission Date: 20100525
  Serious: Yes (Hospitalization)
  Sender: FDA-Public Use
  Company Number: US-JNJFOC-20091105262

PATIENT
  Age: 6 Year
  Sex: Male

DRUGS (3)
  1. TYLENOL [Suspect]
     Route: 048
  2. TYLENOL [Suspect]
     Indication: PAIN
     Dosage: 240MG EVERY 4 HOURS AS NEEDED, ^MAYBE 2-3 DAYS IN A ROW^
     Route: 048
  3. MANY OTHER UNSPECIFIED MEDICATIONS [Concomitant]
     Indication: ASTHMA
     Dosage: BREATHING TREATMENT,^LIQUID MIST MASK^
     Route: 055

REACTIONS (4)
  - ABDOMINAL PAIN UPPER [None]
  - BACTERIAL INFECTION [None]
  - TRANSMISSION OF AN INFECTIOUS AGENT VIA A MEDICINAL PRODUCT [None]
  - WEIGHT DECREASED [None]
